FAERS Safety Report 5442015-0 (Version None)
Quarter: 2007Q3

REPORT INFORMATION
  Report Type: 
  Country: None (occurrence: None)
  Receive Date: 20070904
  Receipt Date: 20070820
  Transmission Date: 20080115
  Serious: Yes (Hospitalization, Other)
  Sender: FDA-Public Use
  Company Number: NL-ELI_LILLY_AND_COMPANY-NL200708004927

PATIENT
  Age: 47 Year
  Sex: Female

DRUGS (17)
  1. OXYCONTIN [Concomitant]
     Dosage: UNK, UNKNOWN
     Route: 048
     Dates: start: 20060610
  2. OXAZEPAM [Concomitant]
     Dosage: UNK, UNKNOWN
     Route: 048
     Dates: start: 20060610
  3. SEROXAT [Concomitant]
     Dosage: UNK, UNKNOWN
     Route: 048
     Dates: start: 20060610
  4. NYSTATINE [Concomitant]
     Dosage: UNK, UNKNOWN
     Route: 048
     Dates: start: 20060610
  5. OXYNORM [Concomitant]
     Dosage: UNK, UNKNOWN
     Route: 048
     Dates: start: 20060610
  6. NAPROXEN [Concomitant]
     Dosage: UNK, UNKNOWN
     Route: 048
     Dates: start: 20060610
  7. MOVICOLON [Concomitant]
     Dosage: UNK, UNKNOWN
     Route: 048
     Dates: start: 20060610
  8. PARACETAMOL [Concomitant]
     Dosage: UNK, UNKNOWN
     Route: 048
     Dates: start: 20060501
  9. EPREX [Concomitant]
     Dosage: UNK, UNKNOWN
     Route: 058
     Dates: start: 20060620
  10. FERROGRADUMET [Concomitant]
     Dosage: UNK, UNKNOWN
     Route: 048
     Dates: start: 20060620
  11. PRIMPERAN /00041901/ [Concomitant]
     Dosage: UNK, UNKNOWN
     Route: 048
     Dates: start: 20060628
  12. HIRUDOID /00723701/ [Concomitant]
     Dosage: UNK, UNKNOWN
     Route: 061
     Dates: start: 20070713
  13. POTASSIUM CHLORIDE [Concomitant]
     Dosage: UNK, UNKNOWN
     Route: 042
     Dates: start: 20060731, end: 20060804
  14. CLARITHROMYCIN [Concomitant]
     Dosage: UNK, UNKNOWN
     Route: 048
     Dates: start: 20060818, end: 20060825
  15. GEMCITABINE HCL [Suspect]
     Indication: NON-SMALL CELL LUNG CANCER
     Dosage: 1640 MG, ON DAY 1, 8 AND 21
     Route: 042
     Dates: start: 20060628, end: 20060802
  16. CISPLATIN [Suspect]
     Indication: NON-SMALL CELL LUNG CANCER
     Dosage: 97 MG ON DAY 1 AND 21
     Route: 042
     Dates: start: 20060628, end: 20060726
  17. *PF-3512676 [Suspect]
     Indication: NON-SMALL CELL LUNG CANCER
     Dosage: 13.5 MG ON DAY 8, 15 AND 21
     Route: 058
     Dates: start: 20060712, end: 20060809

REACTIONS (3)
  - DISEASE PROGRESSION [None]
  - INJECTION SITE INFLAMMATION [None]
  - INJECTION SITE NECROSIS [None]
